FAERS Safety Report 8833974 (Version 1)
Quarter: 2012Q4

REPORT INFORMATION
  Report Type: 
  Country: US (occurrence: US)
  Receive Date: 20121010
  Receipt Date: 20121010
  Transmission Date: 20130627
  Serious: Yes (Hospitalization)
  Sender: FDA-Public Use
  Company Number: US-ELI_LILLY_AND_COMPANY-US201210000914

PATIENT
  Age: 47 Year
  Sex: Female

DRUGS (1)
  1. CYMBALTA [Suspect]
     Indication: PAIN
     Dosage: 60 mg, qd
     Dates: start: 2005

REACTIONS (4)
  - Intervertebral disc protrusion [Unknown]
  - Back pain [Unknown]
  - Staphylococcal infection [Unknown]
  - Fibromyalgia [Unknown]
